FAERS Safety Report 9423652 (Version 1)
Quarter: 2013Q3

REPORT INFORMATION
  Report Type: Spontaneous
  Country: FR (occurrence: FR)
  Receive Date: 20130726
  Receipt Date: 20130726
  Transmission Date: 20140515
  Serious: Yes (Death)
  Sender: FDA-Public Use
  Company Number: FR-ROCHE-1253223

PATIENT
  Age: 33 Year
  Sex: Male

DRUGS (16)
  1. MABTHERA [Suspect]
     Indication: B-CELL LYMPHOMA STAGE II
     Dosage: 4 CYCLES, AT T4
     Route: 041
     Dates: start: 20130111, end: 20130227
  2. MABTHERA [Suspect]
     Dosage: 3 CYCLES, (TOTAL DOSE: 900 MG)
     Route: 041
     Dates: start: 20130329, end: 20130610
  3. HOLOXAN [Suspect]
     Indication: B-CELL LYMPHOMA STAGE II
     Dosage: 3 CYCLES (TOTAL DOSE: 3.8 G)
     Route: 041
     Dates: start: 20130329, end: 20130610
  4. ETOPOPHOS [Suspect]
     Indication: B-CELL LYMPHOMA STAGE II
     Dosage: 3 CYCLES (TOTAL DOSE: 750 MG)
     Route: 042
     Dates: start: 20130329, end: 20130610
  5. ONDANSETRON [Concomitant]
     Dosage: ONE AMPOULE BEFORE AND ONE AMPOULE AFTER CHEMOTHERAPY
     Route: 065
  6. MESNA [Concomitant]
     Dosage: BEFORE ADMINISTRATION OF IFOSFAMIDE, AT T2
     Route: 042
  7. MESNA [Concomitant]
     Dosage: IMMEDIATELY AFTER ADMINISTRATION OF IFOSFAMIDE AND THEN 4 HOURS LATER
     Route: 048
  8. BACTRIM FORTE [Concomitant]
     Route: 065
  9. SPECIAFOLDINE [Concomitant]
     Route: 065
  10. DOXORUBICINE [Concomitant]
     Dosage: AT T3
     Route: 042
  11. METHOTREXATE [Concomitant]
     Dosage: AT T5
     Route: 065
  12. BLEOMYCINE [Concomitant]
     Route: 037
  13. CYCLOPHOSPHAMIDE [Concomitant]
     Dosage: AT T2
     Route: 042
  14. SOLU-MEDROL [Concomitant]
     Dosage: AT T1 - T5
     Route: 065
  15. VINDESINE SULFATE [Concomitant]
  16. DEXAMETHASONE [Concomitant]
     Dosage: AT T1 AND T5
     Route: 065

REACTIONS (2)
  - Septic shock [Fatal]
  - Pancytopenia [Fatal]
